FAERS Safety Report 4891942-1 (Version None)
Quarter: 2006Q1

REPORT INFORMATION
  Report Type: 
  Country: None (occurrence: None)
  Receive Date: 20060123
  Receipt Date: 20060109
  Transmission Date: 20060701
  Serious: Yes (Hospitalization)
  Sender: FDA-Public Use
  Company Number: 2006006659

PATIENT
  Age: 72 Year
  Sex: Male
  Weight: 74 kg

DRUGS (9)
  1. DOXORUBICIN (DOXORUBICIN) [Suspect]
     Indication: LYMPHOMA
     Dosage: 110 MG (DAILY)INTRAVENOUS
     Route: 042
     Dates: start: 20051207, end: 20051207
  2. CYTARABINE [Suspect]
     Indication: LYMPHOMA
     Dosage: 40 MG (DAILY)
     Dates: start: 20051207, end: 20051207
  3. CYCLOPHOSPHAMIDE [Suspect]
     Indication: LYMPHOMA
     Dosage: 930 MG (DAILY),  INTRAVENOUS
     Route: 042
     Dates: start: 20051207, end: 20051209
  4. VINCRISTINE [Suspect]
     Indication: LYMPHOMA
     Dosage: 2 MG (DAILY), INTRAVENOUS
     Route: 042
     Dates: start: 20051206, end: 20051206
  5. METHOTREXATE [Suspect]
     Indication: LYMPHOMA
     Dosage: SEE IMAGE
     Route: 042
     Dates: start: 20051206, end: 20051206
  6. METHOTREXATE [Suspect]
     Indication: LYMPHOMA
     Dosage: SEE IMAGE
     Route: 042
     Dates: start: 20051207, end: 20051207
  7. FOLIC ACID [Concomitant]
  8. HYDROCORTISONE [Concomitant]
  9. METHYLPREDNISOLONE [Concomitant]

REACTIONS (7)
  - DIALYSIS [None]
  - HAEMOPTYSIS [None]
  - LUNG DISORDER [None]
  - PANCYTOPENIA [None]
  - PYREXIA [None]
  - RENAL FAILURE ACUTE [None]
  - RESPIRATORY DISTRESS [None]
